FAERS Safety Report 10220059 (Version 1)
Quarter: 2014Q1

REPORT INFORMATION
  Report Type: Spontaneous
  Country: US (occurrence: None)
  Receive Date: 20140306
  Receipt Date: 20140306
  Transmission Date: 20141002
  Serious: Yes (Other)
  Sender: FDA-Public Use
  Company Number: 163-21880-13082114

PATIENT
  Age: 65 Year
  Sex: Male
  Weight: 106 kg

DRUGS (2)
  1. REVLIMID (LENALIDOMIDE) (5 MILLIGRAM, CAPSULES) [Suspect]
     Indication: PLASMA CELL MYELOMA
     Route: 048
     Dates: start: 20130709
  2. REVLIMID (LENALIDOMIDE) (5 MILLIGRAM, CAPSULES) [Suspect]
     Indication: PARAPROTEINAEMIA
     Route: 048
     Dates: start: 20130709

REACTIONS (7)
  - Bone marrow disorder [None]
  - Increased tendency to bruise [None]
  - Muscle spasms [None]
  - White blood cell count decreased [None]
  - Platelet count decreased [None]
  - Fatigue [None]
  - Rash [None]
